FAERS Safety Report 15861238 (Version 1)
Quarter: 2019Q1

REPORT INFORMATION
  Report Type: Report from Study
  Country: BR (occurrence: BR)
  Receive Date: 20190124
  Receipt Date: 20190124
  Transmission Date: 20190417
  Serious: Yes (Hospitalization)
  Sender: FDA-Public Use
  Company Number: BR-EMD SERONO-7322244

PATIENT
  Age: 34 Year
  Sex: Male

DRUGS (4)
  1. REBIF [Suspect]
     Active Substance: INTERFERON BETA-1A
     Indication: MULTIPLE SCLEROSIS
     Route: 058
     Dates: start: 20130222
  2. BROMAZEPAM [Concomitant]
     Active Substance: BROMAZEPAM
     Indication: PRODUCT USED FOR UNKNOWN INDICATION
  3. DIPYRONE [Concomitant]
     Active Substance: DIPYRONE
     Indication: PAIN
  4. REBIF [Suspect]
     Active Substance: INTERFERON BETA-1A

REACTIONS (7)
  - Fatigue [Not Recovered/Not Resolved]
  - Eye disorder [Recovering/Resolving]
  - Pain [Recovering/Resolving]
  - Injection site erythema [Not Recovered/Not Resolved]
  - Itching scar [Not Recovered/Not Resolved]
  - Pruritus [Not Recovered/Not Resolved]
  - Pyrexia [Unknown]

NARRATIVE: CASE EVENT DATE: 201302
